FAERS Safety Report 5701015-3 (Version None)
Quarter: 2008Q2

REPORT INFORMATION
  Report Type: 
  Country: None (occurrence: None)
  Receive Date: 20080410
  Receipt Date: 20080402
  Transmission Date: 20081010
  Serious: Yes (Hospitalization)
  Sender: FDA-Public Use
  Company Number: VN-BAXTER-2008BH002574

PATIENT
  Sex: Male

DRUGS (2)
  1. DIANEAL [Suspect]
     Indication: PERITONEAL DIALYSIS
     Route: 033
     Dates: start: 20080126
  2. HEPARIN [Concomitant]
     Route: 033
     Dates: start: 20080319, end: 20080321

REACTIONS (1)
  - PERITONITIS BACTERIAL [None]
